FAERS Safety Report 4277108-7 (Version None)
Quarter: 2004Q1

REPORT INFORMATION
  Report Type: 
  Country: None (occurrence: None)
  Receive Date: 20040120
  Receipt Date: 20040113
  Transmission Date: 20041129
  Serious: Yes (Hospitalization)
  Sender: FDA-Public Use
  Company Number: FRWYE506213JAN04

PATIENT
  Age: 16 Year
  Sex: Female

DRUGS (8)
  1. TAZOCILLINE (PIPERACILLIN/TAZOBACTAM, INJECTION) [Suspect]
     Indication: SUBDIAPHRAGMATIC ABSCESS
     Route: 042
     Dates: start: 20031119, end: 20031206
  2. AMIKACIN [Suspect]
     Indication: SUBDIAPHRAGMATIC ABSCESS
     Route: 042
     Dates: start: 20031119, end: 20031121
  3. ROCEPHIN [Suspect]
     Indication: PERITONITIS
     Route: 042
     Dates: start: 20031112, end: 20031118
  4. FLUCONAZOLE [Suspect]
     Indication: SUBDIAPHRAGMATIC ABSCESS
     Route: 042
     Dates: start: 20031207, end: 20031212
  5. VANCOMYCIN [Suspect]
     Indication: SUBDIAPHRAGMATIC ABSCESS
     Route: 042
     Dates: start: 20031121, end: 20031212
  6. FLAGYL [Concomitant]
  7. CIPROFLOXACIN [Concomitant]
  8. TIENAM (CILASTATIN/IMIPENEM) [Concomitant]

REACTIONS (9)
  - BACTERIAL INFECTION [None]
  - CHOLESTASIS [None]
  - CYTOLYTIC HEPATITIS [None]
  - DRUG INEFFECTIVE [None]
  - ENTEROCOCCAL INFECTION [None]
  - ESCHERICHIA INFECTION [None]
  - LEUKOPENIA [None]
  - NEUTROPENIA [None]
  - STREPTOCOCCAL INFECTION [None]
